FAERS Safety Report 9858072 (Version 1)
Quarter: 2014Q1

REPORT INFORMATION
  Report Type: Spontaneous
  Country: US (occurrence: None)
  Receive Date: 20140129
  Receipt Date: 20140129
  Transmission Date: 20141002
  Serious: No
  Sender: FDA-Public Use
  Company Number: None

PATIENT
  Age: 64 Year
  Sex: Male
  Weight: 127.46 kg

DRUGS (2)
  1. IRBESARTAN [Suspect]
     Indication: HYPERTENSION
     Dates: start: 20140115
  2. IRBESARTAN [Suspect]
     Indication: ATRIAL FIBRILLATION
     Dates: start: 20140115

REACTIONS (4)
  - Blood pressure increased [None]
  - Anxiety [None]
  - Nervousness [None]
  - Fear [None]
